FAERS Safety Report 8964530 (Version 2)
Quarter: 2013Q1

REPORT INFORMATION
  Report Type: Spontaneous
  Country: JP (occurrence: JP)
  Receive Date: 20121213
  Receipt Date: 20130109
  Transmission Date: 20140127
  Serious: Yes (Death, Hospitalization)
  Sender: FDA-Public Use
  Company Number: JP-ROCHE-1116691

PATIENT
  Age: 64 Year
  Sex: Female
  Weight: 58 kg

DRUGS (13)
  1. AVASTIN [Suspect]
     Indication: BREAST CANCER METASTATIC
     Route: 041
     Dates: start: 20120626, end: 20120724
  2. ANTICOAGULANTS [Suspect]
     Indication: PRODUCT USED FOR UNKNOWN INDICATION
     Dosage: DOSAGE IS UNCERTAIN.
     Route: 048
  3. PACLITAXEL [Concomitant]
     Indication: BREAST CANCER METASTATIC
     Route: 041
     Dates: start: 20120626, end: 20120724
  4. BAYASPIRIN [Concomitant]
     Indication: ACUTE MYOCARDIAL INFARCTION
     Route: 048
     Dates: start: 20100925, end: 20121108
  5. PLAVIX [Concomitant]
     Indication: ACUTE MYOCARDIAL INFARCTION
     Route: 048
     Dates: start: 20100925, end: 20121108
  6. PROTECADIN [Concomitant]
     Indication: HAEMORRHAGE PROPHYLAXIS
     Route: 048
     Dates: start: 20100925, end: 20121114
  7. NU-LOTAN [Concomitant]
     Indication: HYPERTENSION
     Route: 048
     Dates: start: 20100925, end: 20120723
  8. EPADEL [Concomitant]
     Indication: HYPERLIPIDAEMIA
     Route: 048
     Dates: start: 20110228, end: 20121113
  9. VOLTAREN [Concomitant]
     Indication: PAIN IN EXTREMITY
     Dosage: HASTE
     Route: 048
     Dates: start: 20120517, end: 20121108
  10. VENA [Concomitant]
     Indication: PROPHYLAXIS
     Route: 048
     Dates: start: 20120626, end: 20120724
  11. DEXART [Concomitant]
     Indication: PROPHYLAXIS
     Route: 042
     Dates: start: 20120626, end: 20120724
  12. GASTER [Concomitant]
     Indication: PROPHYLAXIS
     Route: 042
     Dates: start: 20120626, end: 20120724
  13. DENOSUMAB [Concomitant]
     Indication: METASTASES TO BONE
     Dosage: DRUG NAME:RANMARK
     Route: 058
     Dates: start: 20120626, end: 20121015

REACTIONS (8)
  - Breast cancer [Fatal]
  - Urinary bladder haemorrhage [Recovered/Resolved]
  - Skin neoplasm bleeding [Recovered/Resolved]
  - Cystitis [Recovered/Resolved]
  - Epigastric discomfort [Recovering/Resolving]
  - Nausea [Recovering/Resolving]
  - Blood pressure increased [Recovering/Resolving]
  - Dyspepsia [Recovering/Resolving]
